FAERS Safety Report 9527165 (Version 1)
Quarter: 2013Q3

REPORT INFORMATION
  Report Type: Spontaneous
  Country: BR (occurrence: BR)
  Receive Date: 20130916
  Receipt Date: 20130916
  Transmission Date: 20140515
  Serious: Yes (Other)
  Sender: FDA-Public Use
  Company Number: BR-BIOMARINAP-BR-2013-101463

PATIENT
  Age: 11 Year
  Sex: Male
  Weight: 24 kg

DRUGS (1)
  1. NAGLAZYME [Suspect]
     Indication: MUCOPOLYSACCHARIDOSIS VI
     Dosage: 15 MG, QW
     Route: 041
     Dates: start: 20080416

REACTIONS (10)
  - Spinal cord compression [Unknown]
  - Asthenia [Unknown]
  - Hyperreflexia [Unknown]
  - Clonus [Unknown]
  - Extensor plantar response [Unknown]
  - Quadriplegia [Unknown]
  - Gait disturbance [Unknown]
  - Electromyogram abnormal [Unknown]
  - Abdominal pain [Unknown]
  - Arthralgia [Unknown]
